FAERS Safety Report 8811321 (Version 1)
Quarter: 2012Q4

REPORT INFORMATION
  Report Type: Spontaneous
  Country: US (occurrence: None)
  Receive Date: 20120924
  Receipt Date: 20120924
  Transmission Date: 20130627
  Serious: Yes (Hospitalization, Other)
  Sender: FDA-Public Use
  Company Number: 2012P1057362

PATIENT
  Age: 65 Year
  Sex: Male

DRUGS (2)
  1. DONEPEZIL [Suspect]
  2. FLUOXETINE [Suspect]

REACTIONS (6)
  - Diarrhoea [None]
  - Agitation [None]
  - Faecal incontinence [None]
  - Abnormal behaviour [None]
  - Cholinergic syndrome [None]
  - Drug interaction [None]
